FAERS Safety Report 5387156-1 (Version None)
Quarter: 2007Q3

REPORT INFORMATION
  Report Type: 
  Country: None (occurrence: None)
  Receive Date: 20070711
  Receipt Date: 20070627
  Transmission Date: 20080115
  Serious: No
  Sender: FDA-Public Use
  Company Number: US020449

PATIENT
  Age: 44 Year
  Sex: Female
  Weight: 88.905 kg

DRUGS (7)
  1. FENTORA [Suspect]
     Indication: BACK PAIN
     Dosage: 600 UG ONCE BUCCAL
     Route: 002
     Dates: start: 20070627, end: 20070627
  2. SOMA [Concomitant]
  3. AMBIEN [Concomitant]
  4. TRILEPTAL [Concomitant]
  5. MAXIDEX /00016001/ [Concomitant]
  6. TENORMIN [Concomitant]
  7. WELLBUTRIN [Concomitant]

REACTIONS (4)
  - DIZZINESS [None]
  - DRUG DISPENSING ERROR [None]
  - DRUG INEFFECTIVE [None]
  - OFF LABEL USE [None]
